FAERS Safety Report 5000560-6 (Version None)
Quarter: 2006Q2

REPORT INFORMATION
  Report Type: 
  Country: None (occurrence: None)
  Receive Date: 20060512
  Receipt Date: 20060227
  Transmission Date: 20061013
  Serious: Yes (Other)
  Sender: FDA-Public Use
  Company Number: US-BRISTOL-MYERS SQUIBB COMPANY-13297973

PATIENT

DRUGS (1)
  1. CYTOXAN [Suspect]

REACTIONS (1)
  - CYSTITIS HAEMORRHAGIC [None]
